FAERS Safety Report 5967480-1 (Version None)
Quarter: 2008Q4

REPORT INFORMATION
  Report Type: 
  Country: None (occurrence: None)
  Receive Date: 20081125
  Receipt Date: 20081114
  Transmission Date: 20090506
  Serious: Yes (Other)
  Sender: FDA-Public Use
  Company Number: US-PFIZER INC-2008096648

PATIENT
  Sex: Female
  Weight: 54.545 kg

DRUGS (6)
  1. LYRICA [Suspect]
     Indication: HEADACHE
     Dates: start: 20080801
  2. LYRICA [Suspect]
     Indication: NECK PAIN
  3. CRESTOR [Concomitant]
  4. ALTACE [Concomitant]
  5. ATENOLOL [Concomitant]
  6. OMEGA-3 MARINE TRIGLYCERIDES [Concomitant]

REACTIONS (3)
  - ACTIVITIES OF DAILY LIVING IMPAIRED [None]
  - ALOPECIA [None]
  - DRUG INEFFECTIVE [None]
